FAERS Safety Report 4643368-3 (Version None)
Quarter: 2005Q2

REPORT INFORMATION
  Report Type: 
  Country: None (occurrence: None)
  Receive Date: 20050422
  Receipt Date: 20050412
  Transmission Date: 20051028
  Serious: Yes (Hospitalization, Other)
  Sender: FDA-Public Use
  Company Number: HQWYE519518JUN04

PATIENT
  Age: 55 Year
  Sex: Female

DRUGS (8)
  1. EFFEXOR [Suspect]
     Dosage: 75 + 150 MG (FREQUENCY UNSPECIFIED)
  2. EFFEXOR [Suspect]
     Dosage: 75 + 150 MG (FREQUENCY UNSPECIFIED)
  3. FUROSEMIDE [Concomitant]
  4. ATORVASTATIN CALCIUM [Concomitant]
  5. ZETIA [Concomitant]
  6. VALDECOXIB [Concomitant]
  7. LEVOTHYROXINE SODIUM [Concomitant]
  8. ESTRADIOL [Concomitant]

REACTIONS (9)
  - ALVEOLITIS ALLERGIC [None]
  - BRONCHIOLITIS [None]
  - CARDIAC FAILURE CONGESTIVE [None]
  - HYPOXIA [None]
  - LYMPHADENOPATHY [None]
  - NO THERAPEUTIC RESPONSE [None]
  - PNEUMONITIS [None]
  - POST PROCEDURAL COMPLICATION [None]
  - POSTOPERATIVE FEVER [None]
